FAERS Safety Report 4475235-2 (Version None)
Quarter: 2004Q4

REPORT INFORMATION
  Report Type: 
  Country: None (occurrence: None)
  Receive Date: 20041013
  Receipt Date: 20041013
  Transmission Date: 20050328
  Serious: Yes (Hospitalization)
  Sender: FDA-Public Use
  Company Number: None

PATIENT
  Age: 70 Year
  Sex: Male
  Weight: 76.6579 kg

DRUGS (8)
  1. XELODA [Suspect]
     Indication: GLIOBLASTOMA MULTIFORME
     Dosage: 1800 MG BID ORAL
     Route: 048
     Dates: start: 20040517, end: 20040922
  2. DILANTIN [Concomitant]
  3. CARDIA XT [Concomitant]
  4. DECADRON [Concomitant]
  5. KEPPRA [Concomitant]
  6. B6 [Concomitant]
  7. ZANTAC [Concomitant]
  8. ASPIRIN [Concomitant]

REACTIONS (1)
  - CONVULSION [None]
